FAERS Safety Report 6657543-X (Version None)
Quarter: 2010Q1

REPORT INFORMATION
  Report Type: 
  Country: None (occurrence: None)
  Receive Date: 20100326
  Receipt Date: 20100323
  Transmission Date: 20100710
  Serious: Yes (Hospitalization)
  Sender: FDA-Public Use
  Company Number: 2009SP033294

PATIENT
  Age: 67 Year
  Sex: Male
  Weight: 109.7 kg

DRUGS (2)
  1. TEMODAR [Suspect]
     Indication: ACUTE MYELOID LEUKAEMIA
     Dosage: 100 MG/M2;QD;PO, 200 MG/M2;QD;PO
     Route: 048
     Dates: start: 20091021, end: 20091103
  2. TEMODAR [Suspect]
     Indication: ACUTE MYELOID LEUKAEMIA
     Dosage: 100 MG/M2;QD;PO, 200 MG/M2;QD;PO
     Route: 048
     Dates: start: 20091104, end: 20091110

REACTIONS (9)
  - ASTHENIA [None]
  - ERYTHEMA [None]
  - FATIGUE [None]
  - FEBRILE NEUTROPENIA [None]
  - HAEMATOCRIT DECREASED [None]
  - HAEMOGLOBIN DECREASED [None]
  - NO THERAPEUTIC RESPONSE [None]
  - PLATELET COUNT INCREASED [None]
  - TONGUE ULCERATION [None]
